FAERS Safety Report 8075937-5 (Version None)
Quarter: 2012Q1

REPORT INFORMATION
  Report Type: 
  Country: None (occurrence: None)
  Receive Date: 20120127
  Receipt Date: 20120123
  Transmission Date: 20120608
  Serious: Yes (Other)
  Sender: FDA-Public Use
  Company Number: US-PFIZER INC-2012018886

PATIENT
  Sex: Female
  Weight: 83.9 kg

DRUGS (1)
  1. LYRICA [Suspect]
     Indication: FIBROMYALGIA
     Dosage: 100 MG, 3X/DAY

REACTIONS (3)
  - SINUSITIS [None]
  - MIGRAINE [None]
  - COUGH [None]
